FAERS Safety Report 5076572-3 (Version None)
Quarter: 2006Q3

REPORT INFORMATION
  Report Type: 
  Country: None (occurrence: None)
  Receive Date: 20060810
  Receipt Date: 20060731
  Transmission Date: 20061208
  Serious: Yes (Hospitalization)
  Sender: FDA-Public Use
  Company Number: PHBS2006SE11614

PATIENT
  Age: 46 Year
  Sex: Female

DRUGS (1)
  1. SANDIMMUNE [Suspect]
     Indication: STEM CELL TRANSPLANT
     Route: 048
     Dates: start: 20060401, end: 20060501

REACTIONS (7)
  - ACCOMMODATION DISORDER [None]
  - CEREBRAL CYST [None]
  - CONFUSIONAL STATE [None]
  - ENCEPHALOPATHY [None]
  - GAIT DISTURBANCE [None]
  - NUCLEAR MAGNETIC RESONANCE IMAGING BRAIN ABNORMAL [None]
  - VISUAL ACUITY REDUCED [None]
